FAERS Safety Report 8411383-X (Version None)
Quarter: 2012Q2

REPORT INFORMATION
  Report Type: 
  Country: None (occurrence: None)
  Receive Date: 20120605
  Receipt Date: 20120531
  Transmission Date: 20120825
  Serious: Yes (Hospitalization)
  Sender: FDA-Public Use
  Company Number: FR-PFIZER INC-2012130729

PATIENT
  Age: 84 Year
  Sex: Female

DRUGS (3)
  1. PLAVIX [Concomitant]
     Dosage: UNK
  2. ATORVASTATIN [Suspect]
     Dosage: 10 MG (ONE DOSE FORM), 1X/DAY
     Route: 048
     Dates: start: 20080201, end: 20120101
  3. VALSARTAN  AND HYDROCHLOROTHIAZIDE [Concomitant]
     Dosage: UNK

REACTIONS (1)
  - INTERSTITIAL LUNG DISEASE [None]
